FAERS Safety Report 10057126 (Version 2)
Quarter: 2014Q2

REPORT INFORMATION
  Report Type: Spontaneous
  Country: US (occurrence: US)
  Receive Date: 20140403
  Receipt Date: 20140422
  Transmission Date: 20141212
  Serious: No
  Sender: FDA-Public Use
  Company Number: US-ASTRAZENECA-2013SE67474

PATIENT
  Age: 81 Year
  Sex: Female
  Weight: 65.3 kg

DRUGS (16)
  1. NEXIUM [Suspect]
     Indication: GASTROOESOPHAGEAL REFLUX DISEASE
     Route: 048
     Dates: start: 2000
  2. NEXIUM [Suspect]
     Indication: OESOPHAGEAL DISORDER
     Route: 048
     Dates: start: 2000
  3. NEXIUM [Suspect]
     Indication: GASTROOESOPHAGEAL REFLUX DISEASE
     Route: 048
     Dates: start: 2001
  4. NEXIUM [Suspect]
     Indication: OESOPHAGEAL DISORDER
     Route: 048
     Dates: start: 2001
  5. NEXIUM [Suspect]
     Indication: GASTROOESOPHAGEAL REFLUX DISEASE
     Route: 048
     Dates: start: 2004, end: 20140227
  6. NEXIUM [Suspect]
     Indication: OESOPHAGEAL DISORDER
     Route: 048
     Dates: start: 2004, end: 20140227
  7. NEXIUM [Suspect]
     Indication: GASTROOESOPHAGEAL REFLUX DISEASE
     Route: 048
     Dates: start: 20140315
  8. NEXIUM [Suspect]
     Indication: OESOPHAGEAL DISORDER
     Route: 048
     Dates: start: 20140315
  9. METOPROLOL SUCCINATE [Suspect]
     Indication: BLOOD PRESSURE ABNORMAL
     Route: 048
     Dates: start: 2009
  10. PRILOSEC OTC [Suspect]
     Indication: GASTROOESOPHAGEAL REFLUX DISEASE
     Route: 048
     Dates: start: 2001, end: 2001
  11. MORPHINE [Suspect]
     Route: 065
  12. OCUVITE [Concomitant]
     Indication: MACULAR DEGENERATION
     Dosage: OTC BID
     Route: 048
  13. PROLIA [Concomitant]
     Indication: OSTEOPOROSIS
     Dosage: TWICE A YEAR
     Route: 058
  14. VITAMIN D [Concomitant]
     Indication: SUPPLEMENTATION THERAPY
     Dates: start: 2012
  15. VITAMIN B12 [Concomitant]
     Indication: SUPPLEMENTATION THERAPY
     Dosage: 1000MCQ QOD
     Dates: start: 2012
  16. GLUCOSAMINE CHONDROITIN [Concomitant]
     Indication: OSTEOPOROSIS
     Dosage: 750/200MG BID
     Dates: start: 2004

REACTIONS (12)
  - Blood calcium decreased [Not Recovered/Not Resolved]
  - Vitamin B12 decreased [Not Recovered/Not Resolved]
  - Gastrooesophageal reflux disease [Recovered/Resolved]
  - Abdominal pain upper [Recovered/Resolved]
  - Choking [Recovered/Resolved]
  - Back disorder [Not Recovered/Not Resolved]
  - Dyspepsia [Unknown]
  - Pain [Unknown]
  - Drug hypersensitivity [Unknown]
  - Drug dose omission [Unknown]
  - Drug ineffective [Unknown]
  - Intentional product misuse [Unknown]
